FAERS Safety Report 4757230-9 (Version None)
Quarter: 2005Q3

REPORT INFORMATION
  Report Type: 
  Country: None (occurrence: None)
  Receive Date: 20050829
  Receipt Date: 20050823
  Transmission Date: 20060218
  Serious: Yes (Hospitalization)
  Sender: FDA-Public Use
  Company Number: RS005334-F

PATIENT
  Age: 51 Year
  Sex: Female

DRUGS (8)
  1. RABEPRAZOLE SODIUM [Suspect]
     Dosage: ORAL
     Route: 048
     Dates: end: 20050617
  2. ASPIRIN [Suspect]
     Indication: PAIN
     Dosage: REGULAR USE
  3. TRIMEBUTINE (TRIMEBUTINE) [Suspect]
     Dosage: ORAL
     Route: 048
     Dates: end: 20050617
  4. PHLOROGLUCINOL (PHLOROGLUCINOL) [Suspect]
     Dosage: ORAL
     Route: 048
     Dates: end: 20050617
  5. STILNOX (ZOLPIDEM) [Suspect]
     Dosage: ORAL
     Route: 048
     Dates: start: 20020601, end: 20050617
  6. ASPIRIN [Suspect]
     Dosage: ORAL
     Route: 048
     Dates: end: 20050617
  7. PAROXETINE MESILATE (PAROXETINE) [Suspect]
     Dosage: OTHER
     Dates: start: 20020601, end: 20050617
  8. LEVOTHYROXINE (LEVOTHYROXINE SODIUM) [Concomitant]

REACTIONS (4)
  - COLITIS ISCHAEMIC [None]
  - HYPERCHOLESTEROLAEMIA [None]
  - PERIPHERAL ISCHAEMIA [None]
  - RECTAL HAEMORRHAGE [None]
